FAERS Safety Report 17125525 (Version 2)
Quarter: 2020Q1

REPORT INFORMATION
  Report Type: Spontaneous
  Country: CA (occurrence: CA)
  Receive Date: 20191207
  Receipt Date: 20200213
  Transmission Date: 20200409
  Serious: Yes (Other)
  Sender: FDA-Public Use
  Company Number: CA-CELLTRION INC.-2018CA023865

PATIENT

DRUGS (19)
  1. NORTRIPTYLINE [Concomitant]
     Active Substance: NORTRIPTYLINE
     Dosage: UNK
     Route: 065
  2. INFLECTRA [Suspect]
     Active Substance: INFLIXIMAB-DYYB
     Dosage: 500 MG, 0, 2, 6 AND EVERY 8 WEEKS THEREAFTER
     Route: 042
     Dates: start: 20190821
  3. INFLECTRA [Suspect]
     Active Substance: INFLIXIMAB-DYYB
     Dosage: 500 MG, 0, 2, 6 AND EVERY 8 WEEKS THEREAFTER
     Route: 042
     Dates: start: 20191005
  4. MESALAMINE. [Concomitant]
     Active Substance: MESALAMINE
     Dosage: UNK
  5. INFLECTRA [Suspect]
     Active Substance: INFLIXIMAB-DYYB
     Dosage: UNK, EVERY 6 WEEKS
     Route: 042
  6. ENTOCORT [Concomitant]
     Active Substance: BUDESONIDE
     Dosage: UNK
  7. ACETAMINOPHEN. [Concomitant]
     Active Substance: ACETAMINOPHEN
     Dosage: 650 MG, UNK
     Route: 048
  8. HYDROCORTISONE. [Concomitant]
     Active Substance: HYDROCORTISONE
     Dosage: 100 MG, UNK
     Route: 042
  9. INFLECTRA [Suspect]
     Active Substance: INFLIXIMAB-DYYB
     Dosage: 500 MG, 0, 2, 6 AND EVERY 8 WEEKS THEREAFTER
     Route: 042
     Dates: start: 20190109
  10. INFLECTRA [Suspect]
     Active Substance: INFLIXIMAB-DYYB
     Dosage: 500 MG, 0, 2, 6 AND EVERY 8 WEEKS THEREAFTER
     Route: 042
     Dates: start: 20190507
  11. INFLECTRA [Suspect]
     Active Substance: INFLIXIMAB-DYYB
     Dosage: 500 MG, 0, 2, 6 AND EVERY 8 WEEKS THEREAFTER
     Route: 042
     Dates: start: 20190629
  12. INFLECTRA [Suspect]
     Active Substance: INFLIXIMAB-DYYB
     Dosage: 500 MG, 0, 2, 6 AND EVERY 8 WEEKS THEREAFTER
     Route: 042
     Dates: start: 20191123, end: 20191123
  13. INFLECTRA [Suspect]
     Active Substance: INFLIXIMAB-DYYB
     Indication: CROHN^S DISEASE
     Dosage: 500 MG, 0, 2, 6 AND EVERY 8 WEEKS THEREAFTER
     Route: 042
  14. INFLECTRA [Suspect]
     Active Substance: INFLIXIMAB-DYYB
     Dosage: 500 MG, 0, 2, 6 AND EVERY 8 WEEKS THEREAFTER
     Route: 042
     Dates: start: 20190307
  15. MAGNESIUM [Concomitant]
     Active Substance: MAGNESIUM
     Dosage: UNK
     Route: 065
  16. IRON [Concomitant]
     Active Substance: IRON
     Dosage: UNK
     Route: 065
  17. INFLECTRA [Suspect]
     Active Substance: INFLIXIMAB-DYYB
     Dosage: 600 MG, 0, 2, 6 AND EVERY 8 WEEKS THEREAFTER
     Route: 042
  18. INFLECTRA [Suspect]
     Active Substance: INFLIXIMAB-DYYB
     Dosage: 500 MG, 0, 2, 6 AND EVERY 8 WEEKS THEREAFTER
     Route: 042
     Dates: start: 20181126
  19. INFLECTRA [Suspect]
     Active Substance: INFLIXIMAB-DYYB
     Dosage: 500 MG, 0, 2, 6 AND EVERY 8 WEEKS THEREAFTER
     Route: 042
     Dates: start: 20181211

REACTIONS (19)
  - Respiratory rate increased [Unknown]
  - Heart rate irregular [Unknown]
  - Anxiety [Recovering/Resolving]
  - Throat tightness [Recovering/Resolving]
  - Dyspnoea [Recovering/Resolving]
  - Blood pressure fluctuation [Unknown]
  - Throat irritation [Recovering/Resolving]
  - Pharyngitis [Unknown]
  - Pruritus [Recovering/Resolving]
  - Weight increased [Unknown]
  - Nasopharyngitis [Unknown]
  - Incorrect dose administered [Unknown]
  - Swollen tongue [Not Recovered/Not Resolved]
  - Arthralgia [Not Recovered/Not Resolved]
  - Pyrexia [Unknown]
  - Cough [Recovering/Resolving]
  - Off label use [Unknown]
  - Heart rate increased [Unknown]
  - Condition aggravated [Recovering/Resolving]

NARRATIVE: CASE EVENT DATE: 20181126
